FAERS Safety Report 8556070-2 (Version None)
Quarter: 2012Q3

REPORT INFORMATION
  Report Type: 
  Country: None (occurrence: None)
  Receive Date: 20120719
  Receipt Date: 20120704
  Transmission Date: 20120928
  Serious: Yes (Death)
  Sender: FDA-Public Use
  Company Number: MCA-N-12-080

PATIENT
  Age: 19 Year
  Sex: Female

DRUGS (3)
  1. DOXYCYCLINE (TETRADOX) [Concomitant]
  2. VALPROATE SODIUM [Suspect]
     Indication: CHOREA
     Dosage: 500 MG B.I.D.
     Dates: start: 20090622, end: 20090723
  3. STREPTOMYCIN [Concomitant]

REACTIONS (5)
  - METABOLIC ACIDOSIS [None]
  - DRUG RASH WITH EOSINOPHILIA AND SYSTEMIC SYMPTOMS [None]
  - ENCEPHALOPATHY [None]
  - ANTIBIOTIC RESISTANT STAPHYLOCOCCUS TEST POSITIVE [None]
  - BLOOD CULTURE POSITIVE [None]
